FAERS Safety Report 11250575 (Version 1)
Quarter: 2015Q3

REPORT INFORMATION
  Report Type: Spontaneous
  Country: US (occurrence: US)
  Receive Date: 20150708
  Receipt Date: 20150708
  Transmission Date: 20151125
  Serious: No
  Sender: FDA-Public Use
  Company Number: US-PFIZER INC-2015226066

PATIENT
  Age: 56 Year
  Sex: Male

DRUGS (1)
  1. CAVERJECT IMPULSE [Suspect]
     Active Substance: ALPROSTADIL
     Indication: ERECTILE DYSFUNCTION
     Dosage: 20 ?G, INJECTED INTO THE BODY EVERY 3 TIMES A WEEK,NOT ANY SOONER THAN EVERY 24 HOURS)

REACTIONS (2)
  - Product quality issue [Unknown]
  - Drug ineffective [Unknown]
